FAERS Safety Report 6222095-5 (Version None)
Quarter: 2009Q2

REPORT INFORMATION
  Report Type: 
  Country: None (occurrence: None)
  Receive Date: 20090608
  Receipt Date: 20090608
  Transmission Date: 20091009
  Serious: Yes (Hospitalization)
  Sender: FDA-Public Use
  Company Number: None

PATIENT
  Age: 49 Year
  Sex: Female
  Weight: 72.5755 kg

DRUGS (2)
  1. CHANTIX [Suspect]
     Indication: SMOKING CESSATION THERAPY
     Dosage: 1 DAILY  PO
     Route: 048
     Dates: start: 20090511, end: 20090518
  2. CHANTIX [Suspect]
     Indication: SMOKING CESSATION THERAPY
     Dosage: 1 DAILY PO
     Route: 048
     Dates: start: 20090519, end: 20090606

REACTIONS (7)
  - DIABETES MELLITUS INADEQUATE CONTROL [None]
  - ECONOMIC PROBLEM [None]
  - GRAND MAL CONVULSION [None]
  - LOSS OF CONSCIOUSNESS [None]
  - PERIORBITAL HAEMATOMA [None]
  - PRESYNCOPE [None]
  - STRESS [None]
